FAERS Safety Report 23347291 (Version 1)
Quarter: 2023Q4

REPORT INFORMATION
  Report Type: Spontaneous
  Country: US (occurrence: None)
  Receive Date: 20231227
  Receipt Date: 20231227
  Transmission Date: 20240109
  Serious: No
  Sender: FDA-Public Use
  Company Number: None

PATIENT

DRUGS (3)
  1. ATROPINE SULFATE [Suspect]
     Active Substance: ATROPINE SULFATE
  2. ATROPINE SULFATE [Suspect]
     Active Substance: ATROPINE SULFATE
  3. ATROPINE SULFATE [Suspect]
     Active Substance: ATROPINE SULFATE

REACTIONS (2)
  - Product label confusion [None]
  - Packaging design issue [None]
